FAERS Safety Report 8767158 (Version 1)
Quarter: 2012Q4

REPORT INFORMATION
  Report Type: 
  Country: IT (occurrence: IT)
  Receive Date: 20120904
  Receipt Date: 20120904
  Transmission Date: 20130627
  Serious: Yes (Hospitalization)
  Sender: FDA-Public Use
  Company Number: IT-GLAXOSMITHKLINE-B0827127A

PATIENT
  Age: 69 Year
  Sex: Male

DRUGS (1)
  1. ARZERRA [Suspect]
     Indication: CHRONIC LYMPHOCYTIC LEUKAEMIA
     Dosage: 300MG per day
     Route: 042
     Dates: start: 20110712, end: 20110712

REACTIONS (3)
  - Chills [Unknown]
  - Oxygen saturation decreased [Unknown]
  - Bronchospasm [Unknown]
